FAERS Safety Report 4829977-7 (Version None)
Quarter: 2005Q4

REPORT INFORMATION
  Report Type: 
  Country: None (occurrence: None)
  Receive Date: 20051115
  Receipt Date: 20051115
  Transmission Date: 20060501
  Serious: Yes (Hospitalization)
  Sender: FDA-Public Use
  Company Number: None

PATIENT
  Sex: Male
  Weight: 92.3 kg

DRUGS (18)
  1. ASPIRIN [Suspect]
     Indication: CEREBROVASCULAR ACCIDENT PROPHYLAXIS
  2. LISINOPRIL [Suspect]
     Indication: HYPERTENSION
  3. METOPROLOL 25MG BID [Suspect]
     Indication: HYPERTENSION
  4. FUROSEMIDE [Suspect]
     Indication: HYPERTENSION
  5. DEXTRAN-70/ME CELLULOSE 0.3% OPH SOLN [Concomitant]
  6. ACYCLOVIR [Concomitant]
  7. HYDROCODONE 5/ACETAMINOPHEN  500MG [Concomitant]
  8. POLYETHYLENE GLYCOL [Concomitant]
  9. ENOXAPARIN SODIUM [Concomitant]
  10. FLUTAMIDE [Concomitant]
  11. MORPHINE SO4 [Concomitant]
  12. CIPROFLOXACIN HCL [Concomitant]
  13. LEVOTHYROXINE SODIUM [Concomitant]
  14. RANITIDINE HYDROCHLORIDE [Concomitant]
  15. SIMVASTATIN [Concomitant]
  16. POTASSIUM CHLORIDE [Concomitant]
  17. ALLOPURINOL [Concomitant]
  18. DOCUSATE NA [Concomitant]

REACTIONS (8)
  - BLOOD URINE PRESENT [None]
  - DIZZINESS [None]
  - HAEMORRHAGE [None]
  - HEART RATE INCREASED [None]
  - HYPOTENSION [None]
  - PALLOR [None]
  - RENAL FAILURE ACUTE [None]
  - UROGENITAL DISORDER [None]
